FAERS Safety Report 21401548 (Version 2)
Quarter: 2022Q4

REPORT INFORMATION
  Report Type: Spontaneous
  Country: US (occurrence: US)
  Receive Date: 20221003
  Receipt Date: 20221107
  Transmission Date: 20230112
  Serious: Yes (Other)
  Sender: FDA-Public Use
  Company Number: US-GLENMARK PHARMACEUTICALS-2022GMK074761

PATIENT

DRUGS (10)
  1. ZONISAMIDE [Suspect]
     Active Substance: ZONISAMIDE
     Indication: Seizure
     Dosage: 2 DOSAGE FORM, BID, (2 IN THE MORNING AND 2 IN THE EVENING)
     Route: 048
  2. SYNTHROID [Concomitant]
     Active Substance: LEVOTHYROXINE SODIUM
     Indication: Product used for unknown indication
     Dosage: 150 MICROGRAM, QD
     Route: 065
  3. LEXAPRO [Concomitant]
     Active Substance: ESCITALOPRAM OXALATE
     Indication: Product used for unknown indication
     Dosage: 20 MILLIGRAM, QD
     Route: 065
  4. VIMPAT [Concomitant]
     Active Substance: LACOSAMIDE
     Indication: Product used for unknown indication
     Dosage: 150 MILLIGRAM, BID
     Route: 065
  5. ZYPREXA [Concomitant]
     Active Substance: OLANZAPINE
     Indication: Product used for unknown indication
     Dosage: 7.5 MILLIGRAM, QD (2.5 MG FOR AM AND 5 MG FOR PM)
     Route: 065
  6. AZATHIOPRINE [Concomitant]
     Active Substance: AZATHIOPRINE
     Indication: Product used for unknown indication
     Dosage: 100 MILLIGRAM, QD (2 TAB DAILY 50MG)
     Route: 065
  7. APRAZO [Concomitant]
     Indication: Product used for unknown indication
     Dosage: 0.375 GRAM, QD (2AM AND 2PM)
     Route: 065
  8. HYDROXYCHLOROQUINE [Concomitant]
     Active Substance: HYDROXYCHLOROQUINE
     Indication: Product used for unknown indication
     Dosage: 200 MILLIGRAM, QD
     Route: 065
  9. CYANOCOBALAMIN [Concomitant]
     Active Substance: CYANOCOBALAMIN
     Indication: Product used for unknown indication
     Dosage: 1000 MICROGRAM, MONTHLY
     Route: 065
  10. XIFAXAN [Concomitant]
     Active Substance: RIFAXIMIN
     Indication: Product used for unknown indication
     Dosage: UNK
     Route: 065

REACTIONS (3)
  - Peripheral swelling [Unknown]
  - Joint swelling [Unknown]
  - Recalled product administered [Unknown]
